FAERS Safety Report 5451888-7 (Version None)
Quarter: 2007Q3

REPORT INFORMATION
  Report Type: 
  Country: None (occurrence: None)
  Receive Date: 20070912
  Receipt Date: 20070829
  Transmission Date: 20080115
  Serious: Yes (Hospitalization)
  Sender: FDA-Public Use
  Company Number: 2007JP003221

PATIENT
  Sex: Female
  Weight: 50.1 kg

DRUGS (8)
  1. TACROLIMUS [Suspect]
     Indication: LUPUS NEPHRITIS
     Dosage: 3 MG, D, ORAL
     Route: 048
     Dates: start: 20070519
  2. PREDNISONE [Concomitant]
  3. WARFARIN SODIUM [Concomitant]
  4. PARIET (REBEPRAZOLE SODIUM) [Concomitant]
  5. MUCOSTA (REBAMIPIDE) [Concomitant]
  6. BONALON (ALENDRONIC ACID) [Concomitant]
  7. BAKTAR (SULFAMETHOXAZOLE, TRIMETHOPRIM) [Concomitant]
  8. LIPITOR [Concomitant]

REACTIONS (1)
  - MENINGITIS [None]
